FAERS Safety Report 6368548-0 (Version None)
Quarter: 2009Q3

REPORT INFORMATION
  Report Type: 
  Country: None (occurrence: None)
  Receive Date: 20090922
  Receipt Date: 20090911
  Transmission Date: 20100115
  Serious: Yes (Other)
  Sender: FDA-Public Use
  Company Number: US-JNJFOC-20090904062

PATIENT
  Sex: Male
  Weight: 102.06 kg

DRUGS (5)
  1. REMICADE [Suspect]
     Indication: CROHN'S DISEASE
     Route: 042
     Dates: start: 20060101, end: 20090501
  2. REMICADE [Suspect]
     Indication: RHEUMATOID ARTHRITIS
     Route: 042
     Dates: start: 20060101, end: 20090501
  3. IBUPROFEN [Concomitant]
     Indication: PAIN
  4. MOBIC [Concomitant]
     Indication: PAIN
  5. VITAMIN [Concomitant]

REACTIONS (6)
  - BALANCE DISORDER [None]
  - BLISTER [None]
  - GAIT DISTURBANCE [None]
  - IMPAIRED DRIVING ABILITY [None]
  - NEUROPATHY PERIPHERAL [None]
  - PSORIASIS [None]
